FAERS Safety Report 19264316 (Version 3)
Quarter: 2021Q2

REPORT INFORMATION
  Report Type: Report from Study
  Country: AU (occurrence: AU)
  Receive Date: 20210517
  Receipt Date: 20210603
  Transmission Date: 20210717
  Serious: Yes (Other)
  Sender: FDA-Public Use
  Company Number: NVSC2021AU101173

PATIENT
  Sex: Female

DRUGS (1)
  1. MAYZENT [Suspect]
     Active Substance: SIPONIMOD
     Indication: SECONDARY PROGRESSIVE MULTIPLE SCLEROSIS
     Dosage: 2 MG, QD
     Route: 048
     Dates: start: 20210129

REACTIONS (22)
  - Dyspnoea [Unknown]
  - Headache [Unknown]
  - Liver function test increased [Unknown]
  - Hypertension [Unknown]
  - Vision blurred [Unknown]
  - Sensory disturbance [Unknown]
  - Back pain [Unknown]
  - Asthenia [Unknown]
  - Arthralgia [Unknown]
  - Memory impairment [Unknown]
  - Fatigue [Unknown]
  - Coordination abnormal [Unknown]
  - Malaise [Unknown]
  - Tremor [Unknown]
  - Pulmonary embolism [Unknown]
  - Musculoskeletal stiffness [Unknown]
  - Gait disturbance [Unknown]
  - Oral herpes [Unknown]
  - Frustration tolerance decreased [Unknown]
  - Nervousness [Unknown]
  - General physical health deterioration [Unknown]
  - Oedema peripheral [Unknown]
